FAERS Safety Report 11511467 (Version 4)
Quarter: 2015Q4

REPORT INFORMATION
  Report Type: Spontaneous
  Country: US (occurrence: None)
  Receive Date: 20150915
  Receipt Date: 20151217
  Transmission Date: 20160304
  Serious: Yes (Hospitalization, Other)
  Sender: FDA-Public Use
  Company Number: US-MDT-ADR-2015-01786

PATIENT
  Age: 73 Year
  Sex: Female

DRUGS (2)
  1. BACLOFEN INTRATHECAL 500 MCG/ML [Suspect]
     Active Substance: BACLOFEN
     Indication: MUSCLE SPASTICITY
     Dosage: 130 MCG/DAY
  2. LIORESAL [Suspect]
     Active Substance: BACLOFEN
     Dosage: 130 MCG/DAY

REACTIONS (13)
  - Cerebrovascular accident [None]
  - Depressed level of consciousness [None]
  - Disorientation [None]
  - Speech disorder [None]
  - Muscle spasticity [None]
  - Dyskinesia [None]
  - Hypertonia [None]
  - Dysarthria [None]
  - Altered state of consciousness [None]
  - Aphasia [None]
  - Incoherent [None]
  - Hemiparesis [None]
  - Cognitive disorder [None]
